FAERS Safety Report 7790795-1 (Version None)
Quarter: 2011Q3

REPORT INFORMATION
  Report Type: 
  Country: None (occurrence: None)
  Receive Date: 20110930
  Receipt Date: 20110921
  Transmission Date: 20111222
  Serious: Yes (Other)
  Sender: FDA-Public Use
  Company Number: JP-MERCK-1109USA02744

PATIENT
  Age: 71 Year
  Sex: Female
  Weight: 50 kg

DRUGS (9)
  1. PEPCID RPD [Suspect]
     Route: 048
     Dates: end: 20110827
  2. PEPCID RPD [Suspect]
     Route: 048
     Dates: end: 20110827
  3. ONE-ALPHA [Concomitant]
     Route: 065
  4. CAMOSTATE [Concomitant]
     Route: 048
  5. BERIZYM (LYSOZYME CHLORIDE) [Concomitant]
     Route: 065
  6. PEPCID RPD [Suspect]
     Indication: GASTROOESOPHAGEAL REFLUX DISEASE
     Route: 048
     Dates: start: 20110807
  7. METHYCOBAL [Concomitant]
     Route: 065
  8. ASPARA CA [Concomitant]
     Route: 065
  9. PEPCID RPD [Suspect]
     Indication: PANCREATITIS CHRONIC
     Route: 048
     Dates: start: 20110807

REACTIONS (2)
  - THIRST [None]
  - ABDOMINAL DISCOMFORT [None]
